FAERS Safety Report 24732675 (Version 1)
Quarter: 2024Q4

REPORT INFORMATION
  Report Type: Spontaneous
  Country: US (occurrence: US)
  Receive Date: 20241213
  Receipt Date: 20241213
  Transmission Date: 20250115
  Serious: No
  Sender: PERRIGO
  Company Number: US-PERRIGO-24US001761

PATIENT
  Sex: Female

DRUGS (3)
  1. GUAIFENESIN [Suspect]
     Active Substance: GUAIFENESIN
     Indication: Productive cough
     Dosage: 1200 MG, QHS
     Route: 048
     Dates: start: 20240214, end: 20240214
  2. GUAIFENESIN [Suspect]
     Active Substance: GUAIFENESIN
     Dosage: 1200 MG, QAM
     Route: 048
     Dates: start: 20240215, end: 20240215
  3. KEFLEX [Concomitant]
     Active Substance: CEPHALEXIN
     Indication: Sinusitis
     Dosage: UNK
     Route: 065
     Dates: start: 20240215, end: 20240215

REACTIONS (3)
  - Rash erythematous [Recovering/Resolving]
  - Rash pruritic [Recovering/Resolving]
  - Off label use [Unknown]

NARRATIVE: CASE EVENT DATE: 20240214
